FAERS Safety Report 5457494-2 (Version None)
Quarter: 2007Q3

REPORT INFORMATION
  Report Type: 
  Country: None (occurrence: None)
  Receive Date: 20070917
  Receipt Date: 20070904
  Transmission Date: 20080115
  Serious: Yes (Other)
  Sender: FDA-Public Use
  Company Number: DSA_61701_2007

PATIENT
  Sex: Male

DRUGS (3)
  1. DIASTAT [Suspect]
     Indication: CONVULSION
     Dosage: (10 MG PRN RECTAL), (10 MG PRN RECTAL)
     Route: 054
  2. DIASTAT [Suspect]
  3. CLONAZEPAM [Concomitant]

REACTIONS (4)
  - CONVULSION [None]
  - DRUG INEFFECTIVE [None]
  - MEDICAL DEVICE COMPLICATION [None]
  - PHARMACEUTICAL PRODUCT COMPLAINT [None]
